FAERS Safety Report 8147640 (Version 2)
Quarter: 2013Q2

REPORT INFORMATION
  Report Type: Spontaneous
  Country: US (occurrence: US)
  Receive Date: 20110922
  Receipt Date: 20130620
  Transmission Date: 20140414
  Serious: Yes (Other)
  Sender: FDA-Public Use
  Company Number: US-ASTRAZENECA-2011SE12571

PATIENT
  Age: 30 Year
  Sex: Female

DRUGS (16)
  1. SEROQUEL [Suspect]
     Route: 048
     Dates: start: 20090622
  2. SEROQUEL [Suspect]
     Dosage: TAKE HALF
     Route: 048
     Dates: start: 20090622
  3. METRONIDAZOLE [Concomitant]
     Route: 048
     Dates: start: 20090608
  4. CYMBALTA [Concomitant]
     Route: 048
     Dates: start: 20090622
  5. CYMBALTA [Concomitant]
     Route: 048
     Dates: start: 20090624
  6. CLONAZEPAM [Concomitant]
     Route: 048
     Dates: start: 20090624
  7. METHERGINE [Concomitant]
     Route: 048
     Dates: start: 20090701
  8. IBUPROFEN [Concomitant]
     Route: 048
     Dates: start: 20090701
  9. OMEPRAZOLE [Concomitant]
     Route: 048
     Dates: start: 20090723
  10. ALPRAZOLAM [Concomitant]
  11. LORATIDINE [Concomitant]
     Route: 048
  12. ZOLPIDEM [Concomitant]
  13. DEXAMETHAZONE [Concomitant]
  14. PREDNISONE [Concomitant]
  15. LUTERA [Concomitant]
  16. LEVOTHYROXINE [Concomitant]

REACTIONS (3)
  - Pancreatitis [Unknown]
  - Diabetic coma [Unknown]
  - Type 2 diabetes mellitus [Unknown]
